FAERS Safety Report 4950296-2 (Version None)
Quarter: 2006Q1

REPORT INFORMATION
  Report Type: 
  Country: None (occurrence: None)
  Receive Date: 20060315
  Receipt Date: 20060306
  Transmission Date: 20060701
  Serious: Yes (Death)
  Sender: FDA-Public Use
  Company Number: 2006P1000132

PATIENT
  Age: 74 Year
  Sex: Male

DRUGS (14)
  1. RETEPLASE ( RETEPLASE) [Suspect]
     Indication: ACUTE MYOCARDIAL INFARCTION
     Dosage: SEE IMAGE
     Route: 042
  2. EPOETIN BETA [Concomitant]
  3. APROVEL [Concomitant]
  4. PREDNISOLONE [Concomitant]
  5. NORVASC [Concomitant]
  6. ETALPHA [Concomitant]
  7. CALCIGRAN [Concomitant]
  8. FURIX [Concomitant]
  9. TITRALAC [Concomitant]
  10. GABAPENTIN [Concomitant]
  11. SELO-ZOK [Concomitant]
  12. IMUREL [Concomitant]
  13. CEFUROXIME SODIUM [Concomitant]
  14. SODIUM BICARBONATE [Concomitant]

REACTIONS (1)
  - CEREBRAL HAEMORRHAGE [None]
